FAERS Safety Report 25264067 (Version 1)
Quarter: 2025Q2

REPORT INFORMATION
  Report Type: Spontaneous
  Country: CN (occurrence: CN)
  Receive Date: 20250502
  Receipt Date: 20250502
  Transmission Date: 20250716
  Serious: Yes (Hospitalization, Other)
  Sender: BAXTER
  Company Number: None

PATIENT
  Age: 55 Year
  Sex: Female
  Weight: 50.4 kg

DRUGS (4)
  1. CYCLOPHOSPHAMIDE [Suspect]
     Active Substance: CYCLOPHOSPHAMIDE
     Indication: Breast cancer female
     Dosage: 0.84 G, QD
     Route: 041
     Dates: start: 20250418, end: 20250418
  2. SODIUM CHLORIDE [Suspect]
     Active Substance: SODIUM CHLORIDE
     Dosage: 250 ML, QD, INJECTION (WITH DOCETAXEL INJECTION 105MG IVGTT)
     Route: 041
     Dates: start: 20250418, end: 20250418
  3. SODIUM CHLORIDE [Suspect]
     Active Substance: SODIUM CHLORIDE
     Dosage: 80 ML, QD, INJECTION, (WITH CYCLOPHOSPHAMIDE FOR INJECTION 0.84G IVGTT)
     Route: 041
     Dates: start: 20250418, end: 20250418
  4. DOCETAXEL [Suspect]
     Active Substance: DOCETAXEL
     Indication: Breast cancer female
     Dosage: 105 MG, QD
     Route: 041
     Dates: start: 20250418, end: 20250418

REACTIONS (1)
  - Myelosuppression [Unknown]

NARRATIVE: CASE EVENT DATE: 20250428
